FAERS Safety Report 17683800 (Version 2)
Quarter: 2020Q2

REPORT INFORMATION
  Report Type: Spontaneous
  Country: IT (occurrence: IT)
  Receive Date: 20200420
  Receipt Date: 20200520
  Transmission Date: 20200714
  Serious: Yes (Other)
  Sender: FDA-Public Use
  Company Number: NVSC2020IT071724

PATIENT
  Age: 73 Year
  Sex: Female

DRUGS (1)
  1. ETANERCEPT [Suspect]
     Active Substance: ETANERCEPT
     Indication: RHEUMATOID ARTHRITIS
     Dosage: 50 MG, QW (50 MG, WEEKLY)
     Route: 058
     Dates: start: 20180202, end: 20191128

REACTIONS (2)
  - Drug ineffective [Unknown]
  - Polyarthritis [Unknown]

NARRATIVE: CASE EVENT DATE: 20191113
